FAERS Safety Report 4820413-3 (Version None)
Quarter: 2005Q4

REPORT INFORMATION
  Report Type: 
  Country: None (occurrence: None)
  Receive Date: 20051014
  Receipt Date: 20050907
  Transmission Date: 20060501
  Serious: No
  Sender: FDA-Public Use
  Company Number: 2005SP002666

PATIENT
  Age: 70 Year
  Sex: Female

DRUGS (7)
  1. LUNESTA [Suspect]
     Dosage: 2 MG;HS;ORAL, 4 MG;1X;ORAL
     Route: 048
     Dates: start: 20050101, end: 20050101
  2. LUNESTA [Suspect]
     Dosage: 2 MG;HS;ORAL, 4 MG;1X;ORAL
     Route: 048
     Dates: start: 20050101
  3. LEXAPRO [Concomitant]
  4. AMITRIPTYLINE HCL [Concomitant]
  5. PERPHENAZINE [Concomitant]
  6. ATENOLOL [Concomitant]
  7. ENALAPRIL [Concomitant]

REACTIONS (2)
  - DRUG INEFFECTIVE [None]
  - INSOMNIA [None]
